FAERS Safety Report 7574940-9 (Version None)
Quarter: 2011Q2

REPORT INFORMATION
  Report Type: 
  Country: None (occurrence: None)
  Receive Date: 20110627
  Receipt Date: 20110614
  Transmission Date: 20111010
  Serious: Yes (Hospitalization, Other)
  Sender: FDA-Public Use
  Company Number: DE-ELI_LILLY_AND_COMPANY-DE201106003987

PATIENT
  Sex: Female

DRUGS (2)
  1. FORTEO [Suspect]
     Dosage: UNK, QD
     Dates: start: 20101117
  2. MARCUMAR [Concomitant]

REACTIONS (4)
  - VARICELLA [None]
  - FATIGUE [None]
  - FEMORAL NECK FRACTURE [None]
  - CATHETERISATION CARDIAC [None]
